FAERS Safety Report 13698232 (Version 1)
Quarter: 2017Q2

REPORT INFORMATION
  Report Type: Spontaneous
  Country: US (occurrence: US)
  Receive Date: 20170628
  Receipt Date: 20170628
  Transmission Date: 20170830
  Serious: No
  Sender: FDA-Public Use
  Company Number: US-PFIZER INC-2017277524

PATIENT
  Sex: Female
  Weight: 48.8 kg

DRUGS (3)
  1. VITAMIN D [Suspect]
     Active Substance: CHOLECALCIFEROL
     Dosage: 2000 IU, DAILY (2000 UNITS PER DAY)
  2. ZIPRASIDONE HCL [Suspect]
     Active Substance: ZIPRASIDONE HYDROCHLORIDE
     Indication: MENTAL DISORDER
     Dosage: 20MG IN THE MORNING AND 80MG AT NIGHT
  3. PROTONIX [Suspect]
     Active Substance: PANTOPRAZOLE SODIUM
     Indication: GASTROOESOPHAGEAL REFLUX DISEASE
     Dosage: 40 MG, ALTERNATE DAY (EVERY OTHER DAY)
     Route: 048

REACTIONS (4)
  - Product use issue [Unknown]
  - Vitamin D increased [Unknown]
  - Intentional product use issue [Unknown]
  - Blood prolactin increased [Unknown]
